FAERS Safety Report 6258371-X (Version None)
Quarter: 2009Q3

REPORT INFORMATION
  Report Type: 
  Country: None (occurrence: None)
  Receive Date: 20090701
  Receipt Date: 20080723
  Transmission Date: 20100115
  Serious: Yes (Other)
  Sender: FDA-Public Use
  Company Number: 577095

PATIENT
  Sex: Male

DRUGS (2)
  1. KLONOPIN [Suspect]
     Indication: INSOMNIA
     Dosage: 0.5 MG 1 PER DAY
  2. ZOLOFT (SERTRALINE HYDROCHLORIDE) UNK [Concomitant]

REACTIONS (7)
  - CONSTIPATION [None]
  - DRUG DEPENDENCE [None]
  - EATING DISORDER [None]
  - NAUSEA [None]
  - PANIC ATTACK [None]
  - SLEEP DISORDER [None]
  - WEIGHT DECREASED [None]
